FAERS Safety Report 5545747-9 (Version None)
Quarter: 2007Q4

REPORT INFORMATION
  Report Type: 
  Country: None (occurrence: None)
  Receive Date: 20071207
  Receipt Date: 20071121
  Transmission Date: 20080405
  Serious: Yes (Death, Hospitalization, Other)
  Sender: FDA-Public Use
  Company Number: 2007JP005211

PATIENT
  Age: 3 Day
  Sex: Male

DRUGS (3)
  1. CEFTIZOXIME (UNSPECIFIED)(CEFTIZOXIME) INJECTION [Suspect]
     Indication: SEPSIS
     Dosage: 250 MG, BID, 125 MG, BID
     Dates: start: 20050808, end: 20050809
  2. CEFTIZOXIME (UNSPECIFIED)(CEFTIZOXIME) INJECTION [Suspect]
     Indication: SEPSIS
     Dosage: 250 MG, BID, 125 MG, BID
     Dates: start: 20050801
  3. AMOXICILLIN TRIHYDRATE/CLAVULANATE POTASSIUM (CLAVULANATE POTASSIUM) [Concomitant]

REACTIONS (5)
  - GENERAL PHYSICAL HEALTH DETERIORATION [None]
  - MULTI-ORGAN FAILURE [None]
  - NEONATAL ASPHYXIA [None]
  - SEPSIS [None]
  - SHOCK [None]
